FAERS Safety Report 7901429-7 (Version None)
Quarter: 2011Q4

REPORT INFORMATION
  Report Type: 
  Country: None (occurrence: None)
  Receive Date: 20111108
  Receipt Date: 20111102
  Transmission Date: 20120403
  Serious: Yes (Life-Threatening)
  Sender: FDA-Public Use
  Company Number: FR-JNJFOC-20111101523

PATIENT
  Age: 91 Year
  Sex: Male

DRUGS (15)
  1. ZOLPIDEM TARTRATE [Concomitant]
     Route: 065
  2. DURAGESIC-100 [Suspect]
     Indication: PAIN
     Route: 062
     Dates: start: 20111012, end: 20111015
  3. PLAVIX [Concomitant]
     Route: 065
  4. TAMSULOSIN HCL [Concomitant]
     Route: 065
  5. TADENAN [Concomitant]
     Route: 065
  6. MEMANTINE HYDROCHLORIDE [Concomitant]
     Route: 065
  7. STEROGYL [Concomitant]
     Route: 065
  8. EXELON [Concomitant]
     Route: 065
  9. LASIX [Concomitant]
     Route: 065
  10. RISPERDAL [Concomitant]
     Route: 065
  11. TRANDOLAPRIL [Concomitant]
     Route: 065
  12. PULMICORT [Concomitant]
     Route: 065
  13. OXAZEPAM [Concomitant]
     Route: 065
  14. SOTALOL HYDROCHLORIDE [Concomitant]
     Route: 065
  15. ATORVASTATIN CALCIUM [Concomitant]
     Route: 065

REACTIONS (4)
  - HEAD INJURY [None]
  - MIOSIS [None]
  - COMA [None]
  - FALL [None]
